FAERS Safety Report 9008072 (Version 3)
Quarter: 2013Q2

REPORT INFORMATION
  Report Type: Spontaneous
  Country: US (occurrence: US)
  Receive Date: 20130111
  Receipt Date: 20130528
  Transmission Date: 20140414
  Serious: Yes (Hospitalization)
  Sender: FDA-Public Use
  Company Number: US-BAYER-2013-003268

PATIENT
  Age: 35 Year
  Sex: Female
  Weight: 83.9 kg

DRUGS (10)
  1. YAZ [Suspect]
     Indication: CONTRACEPTION
     Dosage: UNK
     Dates: start: 200801, end: 201105
  2. GIANVI [Suspect]
     Indication: CONTRACEPTION
     Dosage: UNK
     Dates: start: 200801, end: 201105
  3. HYDROXYZINE [Concomitant]
     Indication: ANTIALLERGIC THERAPY
     Dosage: 10 MG, PRN
     Route: 048
  4. LYRICA [Concomitant]
     Indication: NEURALGIA
     Dosage: 75 MG, EVERY DAY
     Route: 048
  5. PERCOCET [OXYCODONE HYDROCHLORIDE,OXYCODONE TEREPHTHALATE,PARACETA [Concomitant]
     Indication: PAIN
     Dosage: 1-2 TABLET, Q4HR, PRN
     Route: 048
     Dates: start: 20110426
  6. PREDNISONE [Concomitant]
     Indication: STEROID THERAPY
     Dosage: 60 MG FIRST DAY, DECREASE BY 10 MG EACH DAY
     Route: 048
  7. PRISTIQ [Concomitant]
     Indication: DEPRESSION
     Dosage: 50 MG, EVERY DAY
     Route: 048
     Dates: start: 20100307, end: 20120907
  8. VALTREX [Concomitant]
     Indication: HERPES VIRUS INFECTION
     Dosage: 1000 MG, TID
     Route: 048
     Dates: start: 20110426
  9. VICOPROFEN [Concomitant]
     Indication: PAIN
     Dosage: 1 DF, QID
     Route: 048
  10. ZOFRAN [Concomitant]
     Indication: NAUSEA
     Dosage: 4 MG, EVERY 8 HRS PRN
     Route: 048

REACTIONS (7)
  - Pulmonary embolism [None]
  - Injury [None]
  - Pain [None]
  - Emotional distress [None]
  - General physical health deterioration [None]
  - Anxiety [None]
  - Pain [None]
